FAERS Safety Report 8325086-3 (Version None)
Quarter: 2012Q2

REPORT INFORMATION
  Report Type: 
  Country: None (occurrence: None)
  Receive Date: 20120501
  Receipt Date: 20100324
  Transmission Date: 20120825
  Serious: No
  Sender: FDA-Public Use
  Company Number: US-TEVA-2010001697

PATIENT
  Sex: Female
  Weight: 86.26 kg

DRUGS (2)
  1. NUVIGIL [Suspect]
     Indication: ATTENTION DEFICIT/HYPERACTIVITY DISORDER
     Route: 048
     Dates: start: 20091201, end: 20100314
  2. AMLODIPINE BESYLATE AND BENAZEPRIL HCL [Concomitant]

REACTIONS (4)
  - DECREASED APPETITE [None]
  - PRURITUS [None]
  - EYE PRURITUS [None]
  - LACRIMATION INCREASED [None]
